FAERS Safety Report 19769903 (Version 1)
Quarter: 2021Q3

REPORT INFORMATION
  Report Type: Spontaneous
  Country: BR (occurrence: BR)
  Receive Date: 20210831
  Receipt Date: 20210831
  Transmission Date: 20211014
  Serious: Yes (Other)
  Sender: FDA-Public Use
  Company Number: BR-BAXTER-2021BAX026721

PATIENT

DRUGS (1)
  1. FLOSEAL [Suspect]
     Active Substance: THROMBIN
     Indication: SURGERY
     Route: 065

REACTIONS (2)
  - Procedural pain [Not Recovered/Not Resolved]
  - Spinal cord compression [Not Recovered/Not Resolved]
